FAERS Safety Report 19070402 (Version 1)
Quarter: 2021Q1

REPORT INFORMATION
  Report Type: Report from Study
  Country: None (occurrence: CO)
  Receive Date: 20210329
  Receipt Date: 20210329
  Transmission Date: 20210420
  Serious: Yes (Other)
  Sender: FDA-Public Use
  Company Number: CO-ABBVIE-21K-036-3771238-00

PATIENT
  Sex: Male
  Weight: 71 kg

DRUGS (2)
  1. ZEMPLAR [Suspect]
     Active Substance: PARICALCITOL
     Indication: CHRONIC KIDNEY DISEASE
  2. ZEMPLAR [Suspect]
     Active Substance: PARICALCITOL
     Indication: HYPERPARATHYROIDISM SECONDARY
     Route: 042
     Dates: start: 20170314

REACTIONS (6)
  - Productive cough [Not Recovered/Not Resolved]
  - Goitre [Recovering/Resolving]
  - Initial insomnia [Not Recovered/Not Resolved]
  - Choking [Not Recovered/Not Resolved]
  - Arthralgia [Recovering/Resolving]
  - Oropharyngeal discomfort [Not Recovered/Not Resolved]

NARRATIVE: CASE EVENT DATE: 2020
